FAERS Safety Report 23328444 (Version 2)
Quarter: 2024Q3

REPORT INFORMATION
  Report Type: Report from Study
  Country: FR (occurrence: FR)
  Receive Date: 20231221
  Receipt Date: 20240905
  Transmission Date: 20241017
  Serious: Yes (Other)
  Sender: ROCHE
  Company Number: FR-ROCHE-3471207

PATIENT

DRUGS (1)
  1. TOCILIZUMAB [Suspect]
     Active Substance: TOCILIZUMAB
     Indication: Polymyalgia rheumatica
     Dosage: EXCEPT ONE PATIENT WHO RECEIVED A DOSE OF 4 MG/KG/MONTH.
     Route: 042

REACTIONS (10)
  - Off label use [Unknown]
  - Bursitis [Unknown]
  - Urinary tract infection [Unknown]
  - Bacteraemia [Unknown]
  - Cutaneous lymphoma [Unknown]
  - Myocardial infarction [Unknown]
  - Neutropenia [Unknown]
  - Cytopenia [Unknown]
  - Dyslipidaemia [Unknown]
  - Hepatic function abnormal [Unknown]
